FAERS Safety Report 5630316-2 (Version None)
Quarter: 2008Q1

REPORT INFORMATION
  Report Type: 
  Country: None (occurrence: None)
  Receive Date: 20080219
  Receipt Date: 20080208
  Transmission Date: 20080703
  Serious: Yes (Hospitalization)
  Sender: FDA-Public Use
  Company Number: US-JNJFOC-20080202183

PATIENT
  Sex: Male
  Weight: 71.8 kg

DRUGS (6)
  1. INFLIXIMAB [Suspect]
     Route: 042
  2. INFLIXIMAB [Suspect]
     Indication: CROHN'S DISEASE
     Route: 042
  3. PROBIOTICS [Concomitant]
  4. FISH OIL [Concomitant]
  5. M.V.I. [Concomitant]
  6. METRONIDAZOLE HCL [Concomitant]

REACTIONS (1)
  - PERIRECTAL ABSCESS [None]
